FAERS Safety Report 23099390 (Version 1)
Quarter: 2023Q4

REPORT INFORMATION
  Report Type: Report from Study
  Country: JP (occurrence: JP)
  Receive Date: 20231024
  Receipt Date: 20231024
  Transmission Date: 20240109
  Serious: Yes (Hospitalization)
  Sender: FDA-Public Use
  Company Number: JP-Eisai Medical Research-EC-2023-148383

PATIENT
  Age: 60 Year
  Sex: Male
  Weight: 60.1 kg

DRUGS (20)
  1. LENVATINIB [Suspect]
     Active Substance: LENVATINIB
     Indication: Oesophageal cancer metastatic
     Dosage: DOSE STARTING WITH 8 MG, FLUCTUATED DOSE
     Route: 048
     Dates: start: 20230613, end: 20230905
  2. PEMBROLIZUMAB [Suspect]
     Active Substance: PEMBROLIZUMAB
     Indication: Oesophageal cancer metastatic
     Route: 041
     Dates: start: 20230613, end: 20230803
  3. PEMBROLIZUMAB [Suspect]
     Active Substance: PEMBROLIZUMAB
     Route: 041
     Dates: start: 20230920
  4. CISPLATIN [Suspect]
     Active Substance: CISPLATIN
     Indication: Oesophageal cancer metastatic
     Route: 042
     Dates: start: 20230613, end: 20230824
  5. FLUOROURACIL [Suspect]
     Active Substance: FLUOROURACIL
     Indication: Oesophageal cancer metastatic
     Dosage: ON DAYS 1 TO 5
     Route: 042
     Dates: start: 20230613, end: 20230829
  6. VONOPRAZAN FUMARATE [Concomitant]
     Active Substance: VONOPRAZAN FUMARATE
     Dates: start: 202201
  7. PRIMPERAN [Concomitant]
     Active Substance: METOCLOPRAMIDE HYDROCHLORIDE
     Dates: start: 20230615, end: 20231004
  8. SODIUM GUALENATE [Concomitant]
     Active Substance: SODIUM GUALENATE
     Route: 061
     Dates: start: 20230617
  9. DOMPERIDONE [Concomitant]
     Active Substance: DOMPERIDONE
     Dates: start: 20230617
  10. SENNOSIDES [Concomitant]
     Active Substance: SENNOSIDES
     Dates: start: 20230619
  11. SOLULACT D [Concomitant]
     Dates: start: 20230823, end: 20230830
  12. REPLAS 1 [Concomitant]
     Dates: start: 20230824, end: 20230824
  13. SOLMALT [Concomitant]
     Dates: start: 20230824, end: 20230824
  14. FUROSEMIDE SODIUM [Concomitant]
     Active Substance: FUROSEMIDE SODIUM
     Dates: start: 20230824, end: 20230824
  15. APREPITANT [Concomitant]
     Active Substance: APREPITANT
     Dates: start: 20230824, end: 20230826
  16. PALONOSETRON HYDROCHLORIDE [Concomitant]
     Active Substance: PALONOSETRON HYDROCHLORIDE
     Dates: start: 20230824, end: 20230824
  17. DEXAMETHASONE SODIUM PHOSPHATE [Concomitant]
     Active Substance: DEXAMETHASONE SODIUM PHOSPHATE
     Dates: start: 20230824, end: 20230827
  18. LOXOPROFEN [Concomitant]
     Active Substance: LOXOPROFEN
     Dates: start: 20230823, end: 20230824
  19. BIOFERMIN [BACILLUS SUBTILIS;ENTEROCOCCUS FAECALIS] [Concomitant]
     Dates: start: 20230830, end: 20230910
  20. SODIUM BICARBONATE\SODIUM PHOSPHATE, MONOBASIC [Concomitant]
     Active Substance: SODIUM BICARBONATE\SODIUM PHOSPHATE, MONOBASIC
     Dates: start: 20230620, end: 20230930

REACTIONS (1)
  - Pulmonary embolism [Recovering/Resolving]

NARRATIVE: CASE EVENT DATE: 20230906
